FAERS Safety Report 7151258-X (Version None)
Quarter: 2010Q4

REPORT INFORMATION
  Report Type: 
  Country: None (occurrence: None)
  Receive Date: 20101207
  Receipt Date: 20101207
  Transmission Date: 20110411
  Serious: Yes (Life-Threatening)
  Sender: FDA-Public Use
  Company Number: None

PATIENT
  Age: 67 Year
  Sex: Female
  Weight: 49.8957 kg

DRUGS (3)
  1. NIFEDIPINE [Suspect]
     Indication: HYPERTENSIVE NEPHROPATHY
     Dosage: 30 MG ONE DAILY PO
     Route: 048
     Dates: start: 20101101, end: 20101205
  2. . [Concomitant]
  3. . [Concomitant]

REACTIONS (3)
  - BLOOD PRESSURE INADEQUATELY CONTROLLED [None]
  - DRUG INEFFECTIVE [None]
  - PRODUCT QUALITY ISSUE [None]
